FAERS Safety Report 7308649-3 (Version None)
Quarter: 2011Q1

REPORT INFORMATION
  Report Type: 
  Country: None (occurrence: None)
  Receive Date: 20110223
  Receipt Date: 20110215
  Transmission Date: 20110831
  Serious: Yes (Hospitalization, Other)
  Sender: FDA-Public Use
  Company Number: JP-MERCK-1009USA01827

PATIENT
  Age: 36 Year
  Sex: Female
  Weight: 66 kg

DRUGS (3)
  1. CALCIUM LACTATE [Concomitant]
     Indication: OSTEOPOROSIS
     Route: 048
     Dates: start: 20050715, end: 20101021
  2. PREDNISOLONE [Suspect]
     Indication: SYSTEMIC LUPUS ERYTHEMATOSUS
     Dosage: DOSING FREQUENCY UNKNOWN
     Route: 048
     Dates: start: 20050701, end: 20101021
  3. FOSAMAX [Suspect]
     Indication: OSTEOPOROSIS PROPHYLAXIS
     Dosage: DAILY DOSE UNKNOWN
     Route: 048
     Dates: start: 20050715, end: 20091022

REACTIONS (4)
  - LOW TURNOVER OSTEOPATHY [None]
  - FEMUR FRACTURE [None]
  - DEVICE FAILURE [None]
  - IMPAIRED HEALING [None]
